FAERS Safety Report 11628598 (Version 1)
Quarter: 2015Q4

REPORT INFORMATION
  Report Type: Report from Study
  Country: US (occurrence: US)
  Receive Date: 20151014
  Receipt Date: 20151014
  Transmission Date: 20160304
  Serious: Yes (Other)
  Sender: FDA-Public Use
  Company Number: US-BIOGENIDEC-2015BI135530

PATIENT
  Sex: Male

DRUGS (14)
  1. PRIMEPEXOLE [Concomitant]
  2. GLUCOSAMINE [Concomitant]
     Active Substance: GLUCOSAMINE
  3. SAW PALMETTO [Concomitant]
     Active Substance: SAW PALMETTO
  4. VITAMIN B12 [Concomitant]
     Active Substance: CYANOCOBALAMIN
  5. TYSABRI [Suspect]
     Active Substance: NATALIZUMAB
     Indication: MULTIPLE SCLEROSIS
     Route: 042
     Dates: start: 2010
  6. CRANBERRY. [Concomitant]
     Active Substance: CRANBERRY
  7. AMPYRA [Concomitant]
     Active Substance: DALFAMPRIDINE
  8. VITAMIN D3 [Concomitant]
     Active Substance: CHOLECALCIFEROL
  9. VITAMIN B 4 [Concomitant]
  10. NUVGIL [Concomitant]
  11. FISH OIL [Concomitant]
     Active Substance: FISH OIL
  12. CALCIUM CITRATE [Concomitant]
     Active Substance: CALCIUM CITRATE
  13. MAGNESIUM [Concomitant]
     Active Substance: MAGNESIUM
  14. ATENOLOL. [Concomitant]
     Active Substance: ATENOLOL

REACTIONS (2)
  - Neoplasm skin [Unknown]
  - Balance disorder [Unknown]
